FAERS Safety Report 9547893 (Version 2)
Quarter: 2013Q3

REPORT INFORMATION
  Report Type: Spontaneous
  Country: US (occurrence: US)
  Receive Date: 20130924
  Receipt Date: 20130924
  Transmission Date: 20140515
  Serious: No
  Sender: FDA-Public Use
  Company Number: US-PURDUE-USA-2012-0081341

PATIENT
  Age: 50 Year
  Sex: Male

DRUGS (2)
  1. MORPHINE SULFATE [Suspect]
     Indication: PAIN
     Dosage: 30 MG, TID
     Dates: start: 2000
  2. MORPHINE SULFATE (SIMILAR TO NDA 19-516) [Concomitant]
     Indication: PAIN
     Dosage: 30 MG, TID

REACTIONS (8)
  - Drug effect increased [Unknown]
  - Pain [Not Recovered/Not Resolved]
  - Dyspnoea [Not Recovered/Not Resolved]
  - Dizziness [Not Recovered/Not Resolved]
  - Euphoric mood [Not Recovered/Not Resolved]
  - Agitation [Unknown]
  - Constipation [Unknown]
  - Somnolence [Not Recovered/Not Resolved]
